FAERS Safety Report 8794751 (Version 5)
Quarter: 2014Q2

REPORT INFORMATION
  Report Type: Report from Study
  Country: FR (occurrence: FR)
  Receive Date: 20120917
  Receipt Date: 20140624
  Transmission Date: 20141212
  Serious: Yes (Hospitalization, Other)
  Sender: FDA-Public Use
  Company Number: PHHY2012FR080581

PATIENT
  Age: 87 Year
  Sex: Female
  Weight: 48 kg

DRUGS (15)
  1. ACLASTA/ZOLEDRONATE [Suspect]
     Indication: OSTEOPOROSIS
     Route: 042
     Dates: start: 20110713
  2. COUMADINE [Suspect]
     Dosage: UNK
  3. LEVOTHYROX [Concomitant]
     Dosage: 100 MG, QD
     Dates: start: 1996
  4. OLMETEC [Concomitant]
     Dosage: 10 MG, QD
     Dates: start: 2011, end: 201208
  5. OLMETEC [Concomitant]
     Dosage: UNK
     Dates: start: 2013
  6. PRAVASTATIN [Concomitant]
     Dosage: 20 MG, QD
     Dates: start: 2011
  7. ATENOLOL [Concomitant]
     Dates: start: 2011, end: 2011
  8. MONICOR [Concomitant]
     Dosage: 40 MG, QD
     Dates: start: 2011
  9. TEMESTA [Concomitant]
     Dates: start: 2011
  10. KARDEGIC [Concomitant]
     Dates: start: 2011, end: 201208
  11. LERCAN [Concomitant]
     Dosage: 5 MG, QD
     Dates: start: 2013
  12. AMIODARONE [Concomitant]
     Dates: start: 2012
  13. ADROVANCE [Concomitant]
     Dates: start: 201211
  14. SECTRAL [Concomitant]
     Dosage: 200 MG, QD
  15. LORAZEPAM [Concomitant]
     Dosage: 0.5 MG, QD

REACTIONS (25)
  - Arrhythmia [Not Recovered/Not Resolved]
  - Atrial fibrillation [Not Recovered/Not Resolved]
  - Loss of consciousness [Unknown]
  - Malaise [Unknown]
  - Bradycardia [Unknown]
  - Phlebitis [Unknown]
  - Pollakiuria [Unknown]
  - Pulmonary hypertension [Unknown]
  - Bladder neoplasm [Recovering/Resolving]
  - Urinary bladder polyp [Recovering/Resolving]
  - Deep vein thrombosis [Unknown]
  - Pulmonary embolism [Unknown]
  - Dyspnoea [Unknown]
  - Chest pain [Unknown]
  - Palpitations [Unknown]
  - Insomnia [Unknown]
  - Abdominal wall haematoma [Recovered/Resolved]
  - Abdominal pain upper [Unknown]
  - Abdominal mass [Unknown]
  - Haemorrhage [Unknown]
  - Pain [Unknown]
  - Cough [Unknown]
  - Back pain [Unknown]
  - Nausea [Unknown]
  - Asthenia [Unknown]
